FAERS Safety Report 23565093 (Version 1)
Quarter: 2024Q1

REPORT INFORMATION
  Report Type: Spontaneous
  Country: US (occurrence: None)
  Receive Date: 20240223
  Receipt Date: 20240223
  Transmission Date: 20240409
  Serious: Yes (Hospitalization)
  Sender: FDA-Public Use
  Company Number: None

PATIENT
  Sex: Female

DRUGS (4)
  1. TERIPARATIDE [Suspect]
     Active Substance: TERIPARATIDE
     Indication: Osteoporosis
     Dosage: 20 MCG DAILY UNDER THE SKIN
     Route: 058
     Dates: start: 202212
  2. mertetq [Concomitant]
  3. teriparatide pen (alvogen) [Concomitant]
  4. LYRICA [Concomitant]

REACTIONS (1)
  - Hip fracture [None]
